FAERS Safety Report 4879859-X (Version None)
Quarter: 2006Q1

REPORT INFORMATION
  Report Type: 
  Country: None (occurrence: None)
  Receive Date: 20060113
  Receipt Date: 20050819
  Transmission Date: 20060701
  Serious: Yes (Death, Hospitalization, Other)
  Sender: FDA-Public Use
  Company Number: MX-BOEHRINGER INGELHEIM PHARMACEUTICALS, INC.-2005-BP-14466MX

PATIENT
  Age: 55 Year
  Sex: Male

DRUGS (1)
  1. SECOTEX CAPSULES 0.4MG [Suspect]
     Indication: BENIGN PROSTATIC HYPERPLASIA
     Route: 048
     Dates: start: 20050805, end: 20050805

REACTIONS (3)
  - ACUTE MYOCARDIAL INFARCTION [None]
  - FEELING ABNORMAL [None]
  - SYNCOPE [None]
